FAERS Safety Report 13478896 (Version 1)
Quarter: 2017Q2

REPORT INFORMATION
  Report Type: Spontaneous
  Country: DE (occurrence: DE)
  Receive Date: 20170425
  Receipt Date: 20170425
  Transmission Date: 20170830
  Serious: Yes (Death)
  Sender: FDA-Public Use
  Company Number: DE-TEVA-760406GER

PATIENT
  Age: 41 Year
  Sex: Male
  Weight: 82 kg

DRUGS (2)
  1. BISOPROLOL [Concomitant]
     Active Substance: BISOPROLOL
     Route: 048
     Dates: start: 20170316
  2. CLOZAPIN [Suspect]
     Active Substance: CLOZAPINE
     Route: 048
     Dates: start: 20170301

REACTIONS (1)
  - Death [Fatal]

NARRATIVE: CASE EVENT DATE: 20170319
